FAERS Safety Report 22884104 (Version 5)
Quarter: 2023Q4

REPORT INFORMATION
  Report Type: Spontaneous
  Country: US (occurrence: US)
  Receive Date: 20230830
  Receipt Date: 20231201
  Transmission Date: 20240109
  Serious: Yes (Hospitalization, Other)
  Sender: FDA-Public Use
  Company Number: US-BRISTOL-MYERS SQUIBB COMPANY-2023-122306

PATIENT
  Age: 81 Year
  Sex: Female
  Weight: 58.97 kg

DRUGS (1)
  1. POMALYST [Suspect]
     Active Substance: POMALIDOMIDE
     Indication: Plasma cell myeloma
     Dosage: 3 WEEKS ON,1 WEEK OFF
     Route: 048

REACTIONS (13)
  - Haemoglobin decreased [Unknown]
  - Pharyngitis streptococcal [Unknown]
  - Bronchitis [Unknown]
  - Haemoptysis [Unknown]
  - Wheezing [Unknown]
  - Dyspnoea [Unknown]
  - Fluid retention [Unknown]
  - Cardiac failure congestive [Unknown]
  - Confusional state [Unknown]
  - Oedema [Unknown]
  - Feeling jittery [Unknown]
  - Joint swelling [Unknown]
  - Diarrhoea [Unknown]
